FAERS Safety Report 10462734 (Version 1)
Quarter: 2014Q3

REPORT INFORMATION
  Report Type: Spontaneous
  Country: DE (occurrence: DE)
  Receive Date: 20140918
  Receipt Date: 20140918
  Transmission Date: 20150326
  Serious: Yes (Other)
  Sender: FDA-Public Use
  Company Number: DE-TEVA-509342GER

PATIENT
  Age: 14 Year
  Sex: Female
  Weight: 50 kg

DRUGS (3)
  1. ETANERCEPT [Interacting]
     Active Substance: ETANERCEPT
     Indication: JUVENILE IDIOPATHIC ARTHRITIS
     Dosage: 50 MG MILLIGRAM(S) EVERY WEEK
     Route: 058
     Dates: start: 200909, end: 200911
  2. LEFLUNOMID 20 MG [Suspect]
     Active Substance: LEFLUNOMIDE
     Indication: JUVENILE IDIOPATHIC ARTHRITIS
     Route: 048
     Dates: start: 201405
  3. ETANERCEPT [Interacting]
     Active Substance: ETANERCEPT
     Dosage: 50 MG MILLIGRAM(S) EVERY WEEK
     Route: 058
     Dates: start: 201111

REACTIONS (2)
  - Drug interaction [Unknown]
  - Lipase increased [Unknown]

NARRATIVE: CASE EVENT DATE: 20140825
